FAERS Safety Report 23785662 (Version 1)
Quarter: 2024Q2

REPORT INFORMATION
  Report Type: Spontaneous
  Country: CA (occurrence: CA)
  Receive Date: 20240425
  Receipt Date: 20240425
  Transmission Date: 20240715
  Serious: Yes (Life-Threatening, Hospitalization, Other)
  Sender: FDA-Public Use
  Company Number: CA-BRISTOL-MYERS SQUIBB COMPANY-2024-060767

PATIENT
  Age: 83 Year
  Sex: Male
  Weight: 68 kg

DRUGS (16)
  1. OPDIVO [Suspect]
     Active Substance: NIVOLUMAB
     Indication: Metastatic malignant melanoma
     Dosage: 100MG/10ML
     Route: 042
  2. YERVOY [Suspect]
     Active Substance: IPILIMUMAB
     Indication: Metastatic malignant melanoma
     Dosage: 50MG/10ML
     Route: 042
  3. YERVOY [Suspect]
     Active Substance: IPILIMUMAB
     Dosage: 200MG/40 ML
     Route: 042
  4. ACETAMINOPHEN [Concomitant]
     Active Substance: ACETAMINOPHEN
  5. APIXABAN [Concomitant]
     Active Substance: APIXABAN
  6. BISOPROLOL [Concomitant]
     Active Substance: BISOPROLOL\BISOPROLOL FUMARATE
  7. CALCIUM [Concomitant]
     Active Substance: CALCIUM
  8. DEXAMETHASONE [Concomitant]
     Active Substance: DEXAMETHASONE
  9. DUTASTERIDE [Concomitant]
     Active Substance: DUTASTERIDE
  10. POLYETHYLENE GLYCOL 3350 [Concomitant]
     Active Substance: POLYETHYLENE GLYCOL 3350
     Route: 048
  11. LEVETIRACETAM [Concomitant]
     Active Substance: LEVETIRACETAM
  12. PANTOPRAZOLE [Concomitant]
     Active Substance: PANTOPRAZOLE
  13. SENNOSIDES [Concomitant]
     Active Substance: SENNOSIDES
  14. SITAGLIPTIN [Concomitant]
     Active Substance: SITAGLIPTIN
  15. TAMSULOSIN [Concomitant]
     Active Substance: TAMSULOSIN
  16. CHOLECALCIFEROL [Concomitant]
     Active Substance: CHOLECALCIFEROL

REACTIONS (4)
  - Blood creatinine increased [Unknown]
  - Tubulointerstitial nephritis [Unknown]
  - Hospitalisation [Unknown]
  - Adverse event [Unknown]
